FAERS Safety Report 18856003 (Version 2)
Quarter: 2021Q1

REPORT INFORMATION
  Report Type: Spontaneous
  Country: BR (occurrence: BR)
  Receive Date: 20210206
  Receipt Date: 20210219
  Transmission Date: 20210420
  Serious: Yes (Death, Hospitalization)
  Sender: FDA-Public Use
  Company Number: BR-LUPIN PHARMACEUTICALS INC.-2021-01190

PATIENT
  Age: 36 Year
  Sex: Male

DRUGS (8)
  1. SULFAMETHOXAZOLE AND TRIMETHOPRIM [Suspect]
     Active Substance: SULFAMETHOXAZOLE\TRIMETHOPRIM
     Indication: HAEMOPHAGOCYTIC LYMPHOHISTIOCYTOSIS
  2. SULFAMETHOXAZOLE AND TRIMETHOPRIM [Suspect]
     Active Substance: SULFAMETHOXAZOLE\TRIMETHOPRIM
     Indication: HISTOPLASMOSIS DISSEMINATED
     Dosage: UNK
     Route: 065
  3. AZITHROMYCIN ANHYDROUS. [Suspect]
     Active Substance: AZITHROMYCIN ANHYDROUS
     Indication: HAEMOPHAGOCYTIC LYMPHOHISTIOCYTOSIS
  4. PIPERACILLIN AND TAZOBACTAM [Suspect]
     Active Substance: PIPERACILLIN SODIUM\TAZOBACTAM SODIUM
     Indication: HISTOPLASMOSIS DISSEMINATED
     Dosage: UNK
     Route: 065
  5. PIPERACILLIN AND TAZOBACTAM [Suspect]
     Active Substance: PIPERACILLIN SODIUM\TAZOBACTAM SODIUM
     Indication: HAEMOPHAGOCYTIC LYMPHOHISTIOCYTOSIS
  6. AMPHOTERICIN?B [Suspect]
     Active Substance: AMPHOTERICIN B
     Indication: HISTOPLASMOSIS DISSEMINATED
     Dosage: 1 MILLIGRAM/KILOGRAM, QD
     Route: 065
  7. AMPHOTERICIN?B [Suspect]
     Active Substance: AMPHOTERICIN B
     Indication: HAEMOPHAGOCYTIC LYMPHOHISTIOCYTOSIS
  8. AZITHROMYCIN ANHYDROUS. [Suspect]
     Active Substance: AZITHROMYCIN ANHYDROUS
     Indication: HISTOPLASMOSIS DISSEMINATED
     Dosage: UNK
     Route: 065

REACTIONS (1)
  - Drug ineffective [Fatal]
